FAERS Safety Report 4354983-9 (Version None)
Quarter: 2004Q2

REPORT INFORMATION
  Report Type: 
  Country: None (occurrence: None)
  Receive Date: 20040504
  Receipt Date: 20030918
  Transmission Date: 20050107
  Serious: No
  Sender: FDA-Public Use
  Company Number: 2003-106496-NL

PATIENT
  Age: 29 Year
  Sex: Female

DRUGS (3)
  1. DESOGESTREL AND ETHINYL ESTRADIOL [Suspect]
     Indication: CONTRACEPTION
     Dosage: 1 DF ORAL
     Route: 048
     Dates: start: 20020825, end: 20020831
  2. NAPROXEN SODIUM [Suspect]
     Indication: DYSMENORRHOEA
     Dosage: 2 DF ORAL
     Route: 048
     Dates: start: 20020902, end: 20020902
  3. DIMENHYDRINATE [Suspect]
     Indication: NAUSEA
     Dosage: 2 DF ORAL
     Route: 048
     Dates: start: 20020825, end: 20020901

REACTIONS (10)
  - ANOREXIA [None]
  - DISORIENTATION [None]
  - DIZZINESS [None]
  - FEELING ABNORMAL [None]
  - INSOMNIA [None]
  - LOSS OF CONSCIOUSNESS [None]
  - NAUSEA [None]
  - TREMOR [None]
  - VERTIGO [None]
  - VOMITING [None]
